FAERS Safety Report 4435210-0 (Version None)
Quarter: 2004Q3

REPORT INFORMATION
  Report Type: 
  Country: None (occurrence: None)
  Receive Date: 20040827
  Receipt Date: 20040817
  Transmission Date: 20050211
  Serious: Yes (Other)
  Sender: FDA-Public Use
  Company Number: FR-BRISTOL-MYERS SQUIBB COMPANY-12674891

PATIENT
  Age: 77 Year
  Sex: Male

DRUGS (4)
  1. APROVEL [Suspect]
     Indication: HYPERTENSION
     Dosage: DURATION= 2 WEEKS 3 DAYS
     Route: 048
     Dates: start: 20040323, end: 20040408
  2. NOVONORM [Concomitant]
     Indication: DIABETES MELLITUS NON-INSULIN-DEPENDENT
     Route: 048
  3. GLUCOPHAGE [Concomitant]
     Indication: DIABETES MELLITUS NON-INSULIN-DEPENDENT
     Route: 048
  4. PLAVIX [Concomitant]
     Route: 048

REACTIONS (5)
  - BILIRUBIN CONJUGATED [None]
  - BLOOD BILIRUBIN INCREASED [None]
  - HEPATITIS [None]
  - JAUNDICE [None]
  - TRANSAMINASES INCREASED [None]
